FAERS Safety Report 14150743 (Version 10)
Quarter: 2022Q2

REPORT INFORMATION
  Report Type: Report from Study
  Country: US (occurrence: None)
  Receive Date: 20171102
  Receipt Date: 20220420
  Transmission Date: 20220721
  Serious: Yes (Hospitalization, Other)
  Sender: FDA-Public Use
  Company Number: US-ROCHE-2016445

PATIENT
  Age: 53 Year
  Sex: Female
  Weight: 75.228 kg

DRUGS (43)
  1. VENETOCLAX [Suspect]
     Active Substance: VENETOCLAX
     Indication: Diffuse large B-cell lymphoma
     Dosage: ON DAYS 3-12 IN CYCLE 1, AND DAYS 1-10 WITH ALL SUBSEQUENT CYCLES EXCEPT DOSE LEVEL -1. IF DOSE LEVE
     Route: 048
     Dates: start: 20171007, end: 20171213
  2. VENETOCLAX [Suspect]
     Active Substance: VENETOCLAX
     Dosage: MOST RECENT DOSE PRIOR TO EVENT ONSET ON 31/OCT/2017
     Route: 048
     Dates: start: 20171030
  3. VENETOCLAX [Suspect]
     Active Substance: VENETOCLAX
     Dosage: DAYS 1-10
     Route: 048
     Dates: start: 20180212
  4. RITUXIMAB [Suspect]
     Active Substance: RITUXIMAB
     Indication: Diffuse large B-cell lymphoma
     Route: 041
     Dates: start: 20171007
  5. RITUXIMAB [Suspect]
     Active Substance: RITUXIMAB
     Dosage: DATE OF MOST RECENT DOSE ON 01/NOV/2017
     Route: 042
     Dates: start: 20171030
  6. RITUXIMAB [Suspect]
     Active Substance: RITUXIMAB
     Dosage: ON DAY 1
     Route: 042
     Dates: start: 20180212
  7. ETOPOSIDE PHOSPHATE [Suspect]
     Active Substance: ETOPOSIDE PHOSPHATE
     Indication: Diffuse large B-cell lymphoma
     Route: 042
     Dates: start: 20171007
  8. ETOPOSIDE PHOSPHATE [Suspect]
     Active Substance: ETOPOSIDE PHOSPHATE
     Dosage: DATE OF MOST RECENT DOSE ON 01/NOV/2017
     Route: 042
     Dates: start: 20171030
  9. PREDNISONE [Suspect]
     Active Substance: PREDNISONE
     Indication: Diffuse large B-cell lymphoma
     Dosage: 6 CYCLES
     Route: 048
     Dates: start: 20171007
  10. PREDNISONE [Suspect]
     Active Substance: PREDNISONE
     Dosage: 100 UNITS?MOST RECENT DOSE ON 31/OCT/2017
     Route: 048
     Dates: start: 20171030
  11. PREDNISONE [Suspect]
     Active Substance: PREDNISONE
     Route: 048
     Dates: start: 20171002
  12. VINCRISTINE SULFATE [Suspect]
     Active Substance: VINCRISTINE SULFATE
     Indication: Diffuse large B-cell lymphoma
     Dosage: 6 CYCLES
     Route: 042
     Dates: start: 20171007
  13. VINCRISTINE SULFATE [Suspect]
     Active Substance: VINCRISTINE SULFATE
     Dosage: DATE OF MOST RECENT DOSE ON 01/NOV/2017 ON DAY 1- DAY 3.
     Route: 042
     Dates: start: 20171030
  14. CYCLOPHOSPHAMIDE [Suspect]
     Active Substance: CYCLOPHOSPHAMIDE
     Indication: Diffuse large B-cell lymphoma
     Dosage: 6 CYCLES
     Route: 042
     Dates: start: 20171007
  15. CYCLOPHOSPHAMIDE [Suspect]
     Active Substance: CYCLOPHOSPHAMIDE
     Dosage: 6 CYCLES
     Route: 042
     Dates: start: 20171103
  16. CYCLOPHOSPHAMIDE [Suspect]
     Active Substance: CYCLOPHOSPHAMIDE
     Route: 042
     Dates: start: 20171230
  17. DOXORUBICIN HYDROCHLORIDE [Suspect]
     Active Substance: DOXORUBICIN HYDROCHLORIDE
     Indication: Diffuse large B-cell lymphoma
     Dosage: 6 CYCLES
     Route: 042
     Dates: start: 20171007
  18. DOXORUBICIN HYDROCHLORIDE [Suspect]
     Active Substance: DOXORUBICIN HYDROCHLORIDE
     Route: 042
     Dates: start: 20171226, end: 20171230
  19. ACYCLOVIR [Concomitant]
     Active Substance: ACYCLOVIR
     Route: 048
  20. COLACE [Concomitant]
     Active Substance: DOCUSATE SODIUM
     Indication: Constipation
     Route: 048
  21. OMEPRAZOLE [Concomitant]
     Active Substance: OMEPRAZOLE
     Route: 048
  22. PROMETHAZINE [Concomitant]
     Active Substance: PROMETHAZINE HYDROCHLORIDE
     Indication: Nausea
     Route: 048
  23. SENNA [Concomitant]
     Active Substance: SENNA LEAF\SENNOSIDES\SENNOSIDES A AND B
     Indication: Constipation
     Route: 048
  24. DILAUDID [Concomitant]
     Active Substance: HYDROMORPHONE HYDROCHLORIDE
     Indication: Pain
     Route: 048
  25. ONDANSETRON HCL [Concomitant]
     Active Substance: ONDANSETRON HYDROCHLORIDE
     Indication: Nausea
     Route: 048
  26. ONDANSETRON HCL [Concomitant]
     Active Substance: ONDANSETRON HYDROCHLORIDE
     Indication: Vomiting
     Route: 048
     Dates: start: 20171030, end: 20171101
  27. HYDROMORPHONE [Concomitant]
     Active Substance: HYDROMORPHONE
     Indication: Cancer pain
     Route: 048
  28. SULFAMETHOXAZOLE\TRIMETHOPRIM [Concomitant]
     Active Substance: SULFAMETHOXAZOLE\TRIMETHOPRIM
     Dosage: 400/80 MG
     Route: 048
  29. MIRALAX [Concomitant]
     Active Substance: POLYETHYLENE GLYCOL 3350
     Indication: Constipation
     Dosage: POWDER
     Route: 048
  30. DEXAMETHASONE [Concomitant]
     Active Substance: DEXAMETHASONE
     Route: 042
     Dates: start: 20170928, end: 20171001
  31. LORAZEPAM [Concomitant]
     Active Substance: LORAZEPAM
     Indication: Anxiety
     Dosage: 0.5-1 MG
     Dates: start: 20171102
  32. LORAZEPAM [Concomitant]
     Active Substance: LORAZEPAM
     Indication: Nausea
  33. LORAZEPAM [Concomitant]
     Active Substance: LORAZEPAM
     Indication: Vomiting
  34. CIPROFLOXACIN HYDROCHLORIDE [Concomitant]
     Active Substance: CIPROFLOXACIN HYDROCHLORIDE
  35. BISACODYL [Concomitant]
     Active Substance: BISACODYL
  36. SENNOSIDES [Concomitant]
     Active Substance: SENNOSIDES
  37. DOCUSATE SODIUM [Concomitant]
     Active Substance: DOCUSATE SODIUM
  38. POLYETHYLENE GLYCOL 3350 [Concomitant]
     Active Substance: POLYETHYLENE GLYCOL 3350
  39. CHOLECALCIFEROL [Concomitant]
     Active Substance: CHOLECALCIFEROL
  40. OXYCODONE [Concomitant]
     Active Substance: OXYCODONE
  41. NEUPOGEN [Concomitant]
     Active Substance: FILGRASTIM
  42. DIPHENHYDRAMINE [Concomitant]
     Active Substance: DIPHENHYDRAMINE
  43. LIDOCAINE [Concomitant]
     Active Substance: LIDOCAINE

REACTIONS (17)
  - Colitis [Recovered/Resolved]
  - Small intestinal obstruction [Recovered/Resolved]
  - Clostridium difficile infection [Unknown]
  - Vomiting [Unknown]
  - Hypophagia [Unknown]
  - Hypotension [Unknown]
  - Pyrexia [Unknown]
  - Chills [Unknown]
  - Diverticular perforation [Unknown]
  - Small intestinal obstruction [Unknown]
  - Large intestine perforation [Unknown]
  - Neutropenia [Unknown]
  - Pyrexia [Unknown]
  - Platelet count decreased [Recovered/Resolved]
  - White blood cell count decreased [Recovered/Resolved]
  - Neutrophil count decreased [Recovered/Resolved]
  - Lymphocyte count decreased [Recovered/Resolved]

NARRATIVE: CASE EVENT DATE: 20171008
